FAERS Safety Report 4395419-1 (Version None)
Quarter: 2004Q3

REPORT INFORMATION
  Report Type: 
  Country: None (occurrence: None)
  Receive Date: 20040707
  Receipt Date: 20040623
  Transmission Date: 20050211
  Serious: Yes (Death, Hospitalization)
  Sender: FDA-Public Use
  Company Number: 04P-144-0264249-00

PATIENT
  Sex: Male

DRUGS (4)
  1. KALETRA [Suspect]
     Indication: HIV INFECTION
     Dosage: 3 TABLET, 1 IN 12 HR, PER ORAL
     Route: 048
     Dates: start: 20040117, end: 20040601
  2. LAMIVUDINE [Concomitant]
  3. STAVUDINE [Concomitant]
  4. CHEMOTHERAPY [Concomitant]

REACTIONS (4)
  - GENERAL PHYSICAL HEALTH DETERIORATION [None]
  - MENINGITIS ASEPTIC [None]
  - METASTASES TO MENINGES [None]
  - NON-HODGKIN'S LYMPHOMA [None]
